FAERS Safety Report 24810739 (Version 1)
Quarter: 2025Q1

REPORT INFORMATION
  Report Type: Spontaneous
  Country: GB (occurrence: GB)
  Receive Date: 20250106
  Receipt Date: 20250106
  Transmission Date: 20250409
  Serious: Yes (Other)
  Sender: MYLAN
  Company Number: GB-MHRA-TPP58816418C6957768YC1735637146894

PATIENT
  Age: 58 Year
  Sex: Male
  Weight: 96 kg

DRUGS (6)
  1. AMLODIPINE [Suspect]
     Active Substance: AMLODIPINE BESYLATE
     Indication: Ill-defined disorder
     Dosage: 5 MILLIGRAM, QD (TAKE ONE TABLET ONCE A DAY)
     Route: 065
     Dates: start: 20240131
  2. AMITRIPTYLINE HYDROCHLORIDE [Concomitant]
     Active Substance: AMITRIPTYLINE HYDROCHLORIDE
     Indication: Ill-defined disorder
     Dosage: UNK UNK, PM (1-2 AT NIGHT)
     Route: 065
     Dates: start: 20241011, end: 20241108
  3. FLUCLOXACILLIN [Concomitant]
     Active Substance: FLUCLOXACILLIN
     Indication: Ill-defined disorder
     Dosage: 1 DOSAGE FORM, QID (ADULT DOSE: TAKE ONE CAPSULE FOUR TIMES A DAY FOR 7 DAYS)
     Route: 065
     Dates: start: 20241205, end: 20241212
  4. PREDNISOLONE [Concomitant]
     Active Substance: PREDNISOLONE
     Indication: Ill-defined disorder
     Dosage: 5 DOSAGE FORM, QD (FIVE DAILY)
     Route: 065
     Dates: start: 20241205, end: 20241210
  5. AUDAVATE [Concomitant]
     Indication: Ill-defined disorder
     Route: 065
     Dates: start: 20241218
  6. RAMIPRIL [Concomitant]
     Active Substance: RAMIPRIL
     Indication: Ill-defined disorder
     Dosage: 1 DOSAGE FORM, QD (TAKE ONE CAPSULE ONCE A DAY)
     Route: 065
     Dates: start: 20241218

REACTIONS (3)
  - Swelling face [Recovered/Resolved]
  - Rash macular [Recovering/Resolving]
  - Pruritus [Recovering/Resolving]
